FAERS Safety Report 6274819-9 (Version None)
Quarter: 2009Q3

REPORT INFORMATION
  Report Type: 
  Country: None (occurrence: None)
  Receive Date: 20090717
  Receipt Date: 20090612
  Transmission Date: 20100115
  Serious: Yes (Death)
  Sender: FDA-Public Use
  Company Number: ADE# 09-261DPR

PATIENT
  Age: 67 Year
  Sex: Female

DRUGS (2)
  1. DIGOXIN [Suspect]
     Indication: CARDIAC FAILURE CONGESTIVE
     Dosage: ONE TABLET DAILY           FOR YEARS
  2. THYROID MEDICATIONS [Concomitant]

REACTIONS (3)
  - ABDOMINAL DISCOMFORT [None]
  - NERVOUSNESS [None]
  - TREMOR [None]
